FAERS Safety Report 25925561 (Version 1)
Quarter: 2025Q4

REPORT INFORMATION
  Report Type: Spontaneous
  Country: US (occurrence: None)
  Receive Date: 20251014
  Receipt Date: 20251014
  Transmission Date: 20260118
  Serious: Yes (Other)
  Sender: FDA-CTU
  Company Number: None

PATIENT
  Age: 33 Year
  Sex: Male
  Weight: 96.75 kg

DRUGS (1)
  1. GABAPENTIN [Suspect]
     Active Substance: GABAPENTIN

REACTIONS (9)
  - Diarrhoea [None]
  - Lethargy [None]
  - Headache [None]
  - Palpitations [None]
  - Atrial fibrillation [None]
  - Hyperhidrosis [None]
  - Dyspnoea [None]
  - Angina pectoris [None]
  - Feeling hot [None]

NARRATIVE: CASE EVENT DATE: 20230220
